FAERS Safety Report 7597569-5 (Version None)
Quarter: 2011Q3

REPORT INFORMATION
  Report Type: 
  Country: None (occurrence: None)
  Receive Date: 20110708
  Receipt Date: 20110624
  Transmission Date: 20111222
  Serious: Yes (Hospitalization)
  Sender: FDA-Public Use
  Company Number: JP-ROCHE-777608

PATIENT
  Sex: Male
  Weight: 77 kg

DRUGS (7)
  1. XELODA [Suspect]
     Indication: COLON CANCER
     Route: 048
     Dates: start: 20110127, end: 20110421
  2. AVASTIN [Suspect]
     Dosage: DOSAGE IS UNCERTAIN.
     Route: 041
     Dates: start: 20110127, end: 20110311
  3. OXALIPLATIN [Concomitant]
     Route: 041
     Dates: start: 20100121, end: 20101118
  4. TRICHLORMETHIAZIDE [Concomitant]
     Route: 048
     Dates: start: 20100401, end: 20110421
  5. AVASTIN [Suspect]
     Indication: COLON CANCER
     Dosage: DOSAGE IS UNCERTAIN.
     Route: 041
     Dates: start: 20100121, end: 20110106
  6. FLUOROURACIL [Concomitant]
     Route: 041
     Dates: start: 20100121, end: 20110106
  7. ISOVORIN [Concomitant]
     Route: 041
     Dates: start: 20100121, end: 20110106

REACTIONS (9)
  - CHEST PAIN [None]
  - MITRAL VALVE INCOMPETENCE [None]
  - VENTRICULAR EXTRASYSTOLES [None]
  - BLOOD PRESSURE INCREASED [None]
  - ACUTE MYOCARDIAL INFARCTION [None]
  - ANAEMIA [None]
  - CARDIOMEGALY [None]
  - DILATATION VENTRICULAR [None]
  - ANXIETY [None]
